FAERS Safety Report 7083616-6 (Version None)
Quarter: 2010Q4

REPORT INFORMATION
  Report Type: 
  Country: None (occurrence: None)
  Receive Date: 20101104
  Receipt Date: 20060830
  Transmission Date: 20110411
  Serious: Yes (Life-Threatening)
  Sender: FDA-Public Use
  Company Number: MX-ROCHE-738022

PATIENT
  Sex: Female
  Weight: 25 kg

DRUGS (3)
  1. MYCOPHENOLATE MOFETIL [Suspect]
     Indication: RENAL TRANSPLANT
     Route: 048
     Dates: start: 20031202
  2. CYCLOSPORINE [Concomitant]
     Dates: start: 20031007
  3. PREDNISONE [Concomitant]
     Dates: start: 20031007

REACTIONS (2)
  - CHRONIC ALLOGRAFT NEPHROPATHY [None]
  - GRAFT LOSS [None]
